FAERS Safety Report 4300614-3 (Version None)
Quarter: 2004Q1

REPORT INFORMATION
  Report Type: 
  Country: None (occurrence: None)
  Receive Date: 20040217
  Receipt Date: 20040204
  Transmission Date: 20041129
  Serious: Yes (Hospitalization)
  Sender: FDA-Public Use
  Company Number: 2004007557

PATIENT
  Age: 74 Year
  Sex: Male

DRUGS (2)
  1. DOXAZOSIN MESYLATE [Suspect]
     Indication: BENIGN PROSTATIC HYPERPLASIA
     Dosage: 4 MG DAILY, ORAL
     Route: 048
     Dates: start: 20020801, end: 20031101
  2. FINASTERIDE [Concomitant]

REACTIONS (1)
  - DRUG INEFFECTIVE [None]
